FAERS Safety Report 23098420 (Version 1)
Quarter: 2023Q4

REPORT INFORMATION
  Report Type: Spontaneous
  Country: ES (occurrence: ES)
  Receive Date: 20231023
  Receipt Date: 20231023
  Transmission Date: 20240110
  Serious: Yes (Other)
  Sender: FDA-Public Use
  Company Number: ES-VELOXIS PHARMACEUTICALS, INC.-2023-VEL-00427

PATIENT
  Age: 56 Year
  Sex: Male

DRUGS (5)
  1. BASILIXIMAB [Suspect]
     Active Substance: BASILIXIMAB
     Indication: Prophylaxis against transplant rejection
     Dosage: UNK
     Route: 065
     Dates: start: 201702
  2. MYCOPHENOLATE MOFETIL [Suspect]
     Active Substance: MYCOPHENOLATE MOFETIL
     Indication: Prophylaxis against transplant rejection
     Dosage: UNK
     Route: 065
     Dates: start: 201702, end: 201705
  3. PREDNISONE [Suspect]
     Active Substance: PREDNISONE
     Indication: Prophylaxis against transplant rejection
     Dosage: UNK
     Route: 065
     Dates: start: 201702
  4. RAPAMYCIN [Suspect]
     Active Substance: SIROLIMUS
     Indication: Skin cancer
     Dosage: UNK
     Route: 065
     Dates: start: 201705
  5. TACROLIMUS [Suspect]
     Active Substance: TACROLIMUS
     Indication: Prophylaxis against transplant rejection
     Dosage: UNK
     Route: 065
     Dates: start: 201702

REACTIONS (3)
  - Transplant rejection [Unknown]
  - Renal impairment [Unknown]
  - Skin cancer [Unknown]

NARRATIVE: CASE EVENT DATE: 20180701
